FAERS Safety Report 8326828-3 (Version None)
Quarter: 2012Q2

REPORT INFORMATION
  Report Type: 
  Country: None (occurrence: None)
  Receive Date: 20120501
  Receipt Date: 20120423
  Transmission Date: 20120825
  Serious: Yes (Other)
  Sender: FDA-Public Use
  Company Number: US-TEVA-334994USA

PATIENT
  Sex: Female

DRUGS (1)
  1. PROAIR HFA [Suspect]

REACTIONS (5)
  - DYSPNOEA [None]
  - CHOKING [None]
  - CYANOSIS [None]
  - FOREIGN BODY ASPIRATION [None]
  - COUGH [None]
